FAERS Safety Report 25719156 (Version 1)
Quarter: 2025Q3

REPORT INFORMATION
  Report Type: Spontaneous
  Country: US (occurrence: US)
  Receive Date: 20250823
  Receipt Date: 20250823
  Transmission Date: 20251021
  Serious: No
  Sender: SANOFI AVENTIS
  Company Number: US-SA-2025SA250397

PATIENT
  Age: 30 Year
  Sex: Female
  Weight: 127.27 kg

DRUGS (3)
  1. DUPIXENT [Suspect]
     Active Substance: DUPILUMAB
     Indication: Dermatitis atopic
     Route: 058
  2. TRIAMCINOLONE [Concomitant]
     Active Substance: TRIAMCINOLONE
  3. THERADERM [Concomitant]
     Active Substance: CAMPHOR OIL\MENTHOL\METHYL SALICYLATE 2-ETHYLBUTYRATE\PEPPERMINT OIL

REACTIONS (3)
  - Blister [Unknown]
  - Pruritus [Unknown]
  - Erythema [Unknown]

NARRATIVE: CASE EVENT DATE: 20250801
